FAERS Safety Report 11783535 (Version 1)
Quarter: 2015Q4

REPORT INFORMATION
  Report Type: Spontaneous
  Country: HK (occurrence: HK)
  Receive Date: 20151127
  Receipt Date: 20151127
  Transmission Date: 20160305
  Serious: Yes (Other)
  Sender: FDA-Public Use
  Company Number: HK-GALDERMA-HK15008370

PATIENT
  Age: 8 Month

DRUGS (1)
  1. MIRVASO [Suspect]
     Active Substance: BRIMONIDINE TARTRATE
     Indication: ECZEMA
     Dosage: 2 PEA SIZE
     Route: 061
     Dates: start: 20151112, end: 20151112

REACTIONS (4)
  - Somnolence [Recovered/Resolved]
  - Product use issue [Recovered/Resolved]
  - Eczema [Unknown]
  - Drug administered to patient of inappropriate age [Recovered/Resolved]

NARRATIVE: CASE EVENT DATE: 20151112
